FAERS Safety Report 5530807-9 (Version None)
Quarter: 2007Q4

REPORT INFORMATION
  Report Type: 
  Country: None (occurrence: None)
  Receive Date: 20071130
  Receipt Date: 20071120
  Transmission Date: 20080405
  Serious: Yes (Hospitalization)
  Sender: FDA-Public Use
  Company Number: PHHO2007JP15992

PATIENT
  Age: 63 Year
  Sex: Male

DRUGS (7)
  1. DIOVAN [Suspect]
     Indication: HYPERTENSION
     Dosage: 40 MG, UNK
     Dates: start: 20030131, end: 20060110
  2. LIORESAL [Suspect]
     Indication: SPINAL CORD DISORDER
     Dates: start: 19990413
  3. DANTRIUM [Suspect]
     Indication: SPINAL CORD DISORDER
     Route: 048
     Dates: start: 19990413
  4. HARNAL [Suspect]
     Indication: SPINAL CORD DISORDER
     Dates: start: 20070413
  5. DEPAS [Concomitant]
     Indication: INSOMNIA
  6. TERNELIN [Concomitant]
     Indication: SPINAL CORD DISORDER
  7. ATELEC [Concomitant]
     Indication: HYPERTENSION

REACTIONS (3)
  - ALTERED STATE OF CONSCIOUSNESS [None]
  - BRADYCARDIA [None]
  - HYPOTHERMIA [None]
